FAERS Safety Report 7708691-4 (Version None)
Quarter: 2011Q3

REPORT INFORMATION
  Report Type: 
  Country: None (occurrence: None)
  Receive Date: 20110824
  Receipt Date: 20110824
  Transmission Date: 20111222
  Serious: No
  Sender: FDA-Public Use
  Company Number: None

PATIENT
  Age: 86 Year
  Sex: Male

DRUGS (5)
  1. REVLIMID [Suspect]
     Indication: MULTIPLE MYELOMA
     Dosage: 10MG DAILY ORALLY
     Route: 048
  2. LEVOBUNOLOL [Concomitant]
  3. FLOMAX [Concomitant]
  4. LASIX [Concomitant]
  5. K-TAB [Concomitant]

REACTIONS (1)
  - NEUTROPENIA [None]
